FAERS Safety Report 5485339-3 (Version None)
Quarter: 2007Q4

REPORT INFORMATION
  Report Type: 
  Country: None (occurrence: None)
  Receive Date: 20071010
  Receipt Date: 20071010
  Transmission Date: 20080405
  Serious: Yes (Hospitalization)
  Sender: FDA-Public Use
  Company Number: None

PATIENT
  Sex: Male

DRUGS (1)
  1. RETROVIR [Suspect]
     Dosage: 300 MG  Q12H  PO
     Route: 048
     Dates: start: 20061101, end: 20070131

REACTIONS (3)
  - BONE MARROW FAILURE [None]
  - DRUG PRESCRIBING ERROR [None]
  - INCORRECT DOSE ADMINISTERED [None]
